FAERS Safety Report 15597462 (Version 2)
Quarter: 2018Q4

REPORT INFORMATION
  Report Type: Spontaneous
  Country: US (occurrence: US)
  Receive Date: 20181108
  Receipt Date: 20181218
  Transmission Date: 20190205
  Serious: Yes (Life-Threatening, Hospitalization)
  Sender: FDA-Public Use
  Company Number: US-HORIZON-RAV-0189-2018

PATIENT
  Age: 10 Year
  Sex: Female

DRUGS (13)
  1. SULFAMETHOXAZOLE [Concomitant]
     Active Substance: SULFAMETHOXAZOLE
  2. FISH OIL [Concomitant]
     Active Substance: FISH OIL
  3. RAVICTI [Suspect]
     Active Substance: GLYCEROL PHENYLBUTYRATE
     Indication: PRODUCT USED FOR UNKNOWN INDICATION
     Dosage: 3 ML TID
     Dates: start: 201803, end: 20181128
  4. NYSTATIN. [Concomitant]
     Active Substance: NYSTATIN
  5. UROSODIOL [Concomitant]
  6. AMLODIPINE [Concomitant]
     Active Substance: AMLODIPINE BESYLATE
  7. VALCYTE [Concomitant]
     Active Substance: VALGANCICLOVIR HYDROCHLORIDE
  8. TACROLIMUS. [Concomitant]
     Active Substance: TACROLIMUS
  9. LEVETIRACETAM. [Concomitant]
     Active Substance: LEVETIRACETAM
  10. PREDNISOLONE. [Concomitant]
     Active Substance: PREDNISOLONE
  11. CITRULLINE [Concomitant]
     Active Substance: CITRULLINE
  12. MG OX. [Concomitant]
  13. OXCARBAZEPINE. [Concomitant]
     Active Substance: OXCARBAZEPINE

REACTIONS (3)
  - Liver transplant [Recovered/Resolved]
  - Ornithine transcarbamoylase deficiency [Unknown]
  - Disease progression [Unknown]

NARRATIVE: CASE EVENT DATE: 20181015
